FAERS Safety Report 4821346-9 (Version None)
Quarter: 2005Q4

REPORT INFORMATION
  Report Type: 
  Country: None (occurrence: None)
  Receive Date: 20051107
  Receipt Date: 20050920
  Transmission Date: 20060501
  Serious: No
  Sender: FDA-Public Use
  Company Number: US-GLAXOSMITHKLINE-A0575053A

PATIENT
  Age: 62 Year
  Sex: Female

DRUGS (6)
  1. AVANDAMET [Suspect]
     Dosage: 1TAB TWICE PER DAY
     Route: 048
     Dates: start: 20050101
  2. ZOCOR [Concomitant]
  3. BLOOD PRESSURE MEDICATION [Concomitant]
  4. ASPIRIN [Concomitant]
  5. MOTRIN [Concomitant]
  6. ULTRAM [Concomitant]

REACTIONS (3)
  - ANTICOAGULANT THERAPY [None]
  - BLOOD CHOLESTEROL DECREASED [None]
  - CHILLS [None]
